FAERS Safety Report 22059506 (Version 1)
Quarter: 2023Q1

REPORT INFORMATION
  Report Type: Spontaneous
  Country: DE (occurrence: DE)
  Receive Date: 20230303
  Receipt Date: 20230303
  Transmission Date: 20230417
  Serious: Yes (Hospitalization)
  Sender: FDA-Public Use
  Company Number: DE-HORIZON THERAPEUTICS-HZN-2023-000734

PATIENT

DRUGS (2)
  1. RAVICTI [Interacting]
     Active Substance: GLYCEROL PHENYLBUTYRATE
     Indication: Argininosuccinate synthetase deficiency
     Dosage: 5.5 ML, TID
     Route: 065
     Dates: start: 201801
  2. DROSPIRENONE [Interacting]
     Active Substance: DROSPIRENONE
     Indication: Oral contraception
     Dosage: UNK
     Route: 048
     Dates: start: 202212, end: 20230123

REACTIONS (2)
  - Hyperammonaemia [Unknown]
  - Drug interaction [Unknown]

NARRATIVE: CASE EVENT DATE: 20221206
